FAERS Safety Report 7001824-7 (Version None)
Quarter: 2010Q3

REPORT INFORMATION
  Report Type: 
  Country: None (occurrence: None)
  Receive Date: 20100920
  Receipt Date: 20100521
  Transmission Date: 20110219
  Serious: No
  Sender: FDA-Public Use
  Company Number: US-ASTRAZENECA-2010SE23520

PATIENT
  Age: 19533 Day
  Sex: Female
  Weight: 72.6 kg

DRUGS (4)
  1. SEROQUEL [Suspect]
     Indication: BIPOLAR DISORDER
     Route: 048
     Dates: start: 20070101
  2. DEPAKOTE [Concomitant]
     Indication: ANXIETY
     Route: 048
  3. CITALOPRAM HYDROBROMIDE [Concomitant]
     Indication: ANXIETY
     Route: 048
  4. LOEAZAPAM [Concomitant]
     Indication: ANXIETY
     Route: 048

REACTIONS (5)
  - ANXIETY [None]
  - DRUG DOSE OMISSION [None]
  - DYSPNOEA [None]
  - MUSCULOSKELETAL STIFFNESS [None]
  - NERVOUSNESS [None]
